FAERS Safety Report 12188130 (Version 2)
Quarter: 2018Q2

REPORT INFORMATION
  Report Type: Spontaneous
  Country: TR (occurrence: TR)
  Receive Date: 20160317
  Receipt Date: 20180601
  Transmission Date: 20180711
  Serious: Yes (Other)
  Sender: FDA-Public Use
  Company Number: TR-GLAXOSMITHKLINE-TR2016GSK036931

PATIENT
  Age: 43 Year
  Sex: Female

DRUGS (5)
  1. ACYCLOVIR. [Suspect]
     Active Substance: ACYCLOVIR
     Dosage: UNK
     Route: 048
  2. EXEMESTANE. [Concomitant]
     Active Substance: EXEMESTANE
     Indication: CHEMOTHERAPY
  3. ACYCLOVIR. [Suspect]
     Active Substance: ACYCLOVIR
     Dosage: UNK
     Route: 051
  4. CRIZOTINIB [Concomitant]
     Active Substance: CRIZOTINIB
     Indication: CHEMOTHERAPY
  5. ACYCLOVIR. [Suspect]
     Active Substance: ACYCLOVIR
     Indication: HERPES ZOSTER DISSEMINATED
     Dosage: 10 MG/KG, TID, (EVERY 8 HOURS)
     Route: 042

REACTIONS (5)
  - Phlebitis [Recovered/Resolved]
  - Injection site erythema [Unknown]
  - Injection site vesicles [Unknown]
  - Thrombosis [Unknown]
  - Dermatitis bullous [Recovered/Resolved]
